FAERS Safety Report 9559815 (Version 1)
Quarter: 2013Q3

REPORT INFORMATION
  Report Type: Spontaneous
  Country: US (occurrence: None)
  Receive Date: 20130821
  Receipt Date: 20130821
  Transmission Date: 20140515
  Serious: Yes (Other)
  Sender: FDA-Public Use
  Company Number: 1000045893

PATIENT
  Age: 69 Year
  Sex: Female

DRUGS (2)
  1. TUDORZA PRESSAIR [Suspect]
     Indication: CHRONIC OBSTRUCTIVE PULMONARY DISEASE
     Dosage: 800 MCG (400 MCG, 2 IN 1 D) RESPIRATORY (INHALATION)
     Route: 055
     Dates: start: 201304
  2. EXFORGE (AMLODIPINE, VALSARTAN) (AMLODIPINE, VALSARTAN) [Concomitant]

REACTIONS (3)
  - Blood pressure increased [None]
  - Palpitations [None]
  - Heart rate increased [None]
